FAERS Safety Report 11165177 (Version 4)
Quarter: 2015Q3

REPORT INFORMATION
  Report Type: Spontaneous
  Country: CA (occurrence: CA)
  Receive Date: 20150604
  Receipt Date: 20150819
  Transmission Date: 20151125
  Serious: Yes (Hospitalization, Other)
  Sender: FDA-Public Use
  Company Number: CA-GLAXOSMITHKLINE INC.-CA2015GSK074803

PATIENT
  Age: 56 Year
  Sex: Male

DRUGS (6)
  1. TAFINLAR [Suspect]
     Active Substance: DABRAFENIB MESYLATE
     Indication: METASTATIC MALIGNANT MELANOMA
     Dosage: 150 MG, BID
  2. MEKINIST [Suspect]
     Active Substance: TRAMETINIB DIMETHYL SULFOXIDE
     Indication: METASTATIC MALIGNANT MELANOMA
     Dosage: 2 MG, QD
  3. MEKINIST [Suspect]
     Active Substance: TRAMETINIB DIMETHYL SULFOXIDE
     Dosage: UNK
  4. TAFINLAR [Suspect]
     Active Substance: DABRAFENIB MESYLATE
     Dosage: UNK
  5. TYLENOL [Concomitant]
     Active Substance: ACETAMINOPHEN
     Indication: PRODUCT USED FOR UNKNOWN INDICATION
     Dosage: UNK
  6. ZOFRAN [Concomitant]
     Active Substance: ONDANSETRON HYDROCHLORIDE
     Indication: PRODUCT USED FOR UNKNOWN INDICATION

REACTIONS (14)
  - Metastases to meninges [Unknown]
  - Vision blurred [Unknown]
  - Nausea [Unknown]
  - Asthenia [Unknown]
  - Headache [Unknown]
  - Accident [Recovered/Resolved]
  - Pneumothorax [Recovering/Resolving]
  - Dizziness [Unknown]
  - Traumatic lung injury [Recovered/Resolved]
  - Aphasia [Unknown]
  - Lumbar puncture [Unknown]
  - Delirium [Recovering/Resolving]
  - Rib fracture [Recovering/Resolving]
  - Constipation [Unknown]

NARRATIVE: CASE EVENT DATE: 20150524
